FAERS Safety Report 5415238-4 (Version None)
Quarter: 2007Q3

REPORT INFORMATION
  Report Type: 
  Country: None (occurrence: None)
  Receive Date: 20070813
  Receipt Date: 20070802
  Transmission Date: 20080115
  Serious: Yes (Other)
  Sender: FDA-Public Use
  Company Number: 163-21880-07061536

PATIENT
  Age: 70 Year
  Sex: Male

DRUGS (19)
  1. REVLIMID [Suspect]
     Indication: MULTIPLE MYELOMA
     Dosage: 10 MG, D1-14, ORAL; 15 MG, DAILY X 21 DAYS, ORAL; 25 MG, DAILY X 21 DAYS, ORAL
     Route: 048
     Dates: start: 20051210, end: 20060101
  2. REVLIMID [Suspect]
     Indication: MULTIPLE MYELOMA
     Dosage: 10 MG, D1-14, ORAL; 15 MG, DAILY X 21 DAYS, ORAL; 25 MG, DAILY X 21 DAYS, ORAL
     Route: 048
     Dates: start: 20060105
  3. REVLIMID [Suspect]
     Indication: MULTIPLE MYELOMA
     Dosage: 10 MG, D1-14, ORAL; 15 MG, DAILY X 21 DAYS, ORAL; 25 MG, DAILY X 21 DAYS, ORAL
     Route: 048
     Dates: start: 20070710
  4. PREDNISONE TAB [Suspect]
     Indication: MULTIPLE MYELOMA
  5. MELPHALAN (MELPHALAN) [Suspect]
     Indication: MULTIPLE MYELOMA
  6. DEXAMETHASONE TAB [Suspect]
     Indication: MULTIPLE MYELOMA
     Dosage: 40 MG, QD X 4D, Q WEEK FOR 3 WEEKS, 1 WEEK OFF,; DAYS OF VELCADE AND AFTER,
     Dates: start: 20051210
  7. DEXAMETHASONE TAB [Suspect]
     Indication: MULTIPLE MYELOMA
     Dosage: 40 MG, QD X 4D, Q WEEK FOR 3 WEEKS, 1 WEEK OFF,; DAYS OF VELCADE AND AFTER,
     Dates: start: 20070710
  8. VELCADE [Suspect]
     Indication: MULTIPLE MYELOMA
     Dosage: INTRAVENOUS; 0.7 MG/M2, ON DAYS 1 AND 8, INTRAVENOUS
     Route: 042
     Dates: start: 20070710
  9. NORVASC [Concomitant]
  10. VITAMIN B6 (PYRIDOXINE HYDROCHLORIDE) (100 MILLIGRAM, TABLETS) [Concomitant]
  11. AMBIEN (ZOLPIDEM TARTRATE) (10 MILLIGRAM, TABLETS) [Concomitant]
  12. VITAMIN E [Concomitant]
  13. VITAMIN A [Concomitant]
  14. CALCIUM (CALCIUM) [Concomitant]
  15. GARLIC (GARLIC) [Concomitant]
  16. MULTIVITAMIN [Concomitant]
  17. ATIVAN [Concomitant]
  18. FLUCONAZOLE [Concomitant]
  19. ASPIRIN [Concomitant]

REACTIONS (21)
  - ANAEMIA MACROCYTIC [None]
  - ANXIETY [None]
  - BLOOD CREATININE INCREASED [None]
  - BLOOD UREA INCREASED [None]
  - CARDIAC DISORDER [None]
  - CONFUSIONAL STATE [None]
  - CONSTIPATION [None]
  - DISEASE PROGRESSION [None]
  - DIZZINESS [None]
  - DRUG EFFECT DECREASED [None]
  - DRUG TOXICITY [None]
  - EPISTAXIS [None]
  - FATIGUE [None]
  - FEELING ABNORMAL [None]
  - GAIT DISTURBANCE [None]
  - MALIGNANT NEOPLASM PROGRESSION [None]
  - MULTIPLE MYELOMA [None]
  - NEUROPATHY PERIPHERAL [None]
  - PANCYTOPENIA [None]
  - TONGUE ULCERATION [None]
  - UPPER RESPIRATORY TRACT INFECTION [None]
